FAERS Safety Report 4713583-9 (Version None)
Quarter: 2005Q3

REPORT INFORMATION
  Report Type: 
  Country: None (occurrence: None)
  Receive Date: 20050711
  Receipt Date: 20050630
  Transmission Date: 20060218
  Serious: Yes (Hospitalization)
  Sender: FDA-Public Use
  Company Number: 200510531BVD

PATIENT
  Age: 68 Year
  Sex: Female
  Weight: 65 kg

DRUGS (5)
  1. AVELOX [Suspect]
     Indication: BRONCHITIS
     Dosage: 400 MG, QD, ORAL
     Route: 048
  2. AVELOX [Suspect]
     Indication: COUGH
     Dosage: 400 MG, QD, ORAL
     Route: 048
  3. AVELOX [Suspect]
     Indication: PYREXIA
     Dosage: 400 MG, QD, ORAL
     Route: 048
  4. DOXYCYCLINE [Concomitant]
  5. CATAPRES [Concomitant]

REACTIONS (11)
  - BLOOD BICARBONATE DECREASED [None]
  - DRUG HYPERSENSITIVITY [None]
  - DRY MOUTH [None]
  - FANCONI SYNDROME [None]
  - HUNGER [None]
  - HYPONATRAEMIA [None]
  - NEPHRITIS INTERSTITIAL [None]
  - NOCTURIA [None]
  - RENAL DISORDER [None]
  - RENAL TUBULAR DISORDER [None]
  - URINE ANALYSIS ABNORMAL [None]
